FAERS Safety Report 7397000-9 (Version None)
Quarter: 2011Q2

REPORT INFORMATION
  Report Type: 
  Country: None (occurrence: None)
  Receive Date: 20110406
  Receipt Date: 20110328
  Transmission Date: 20111010
  Serious: Yes (Hospitalization)
  Sender: FDA-Public Use
  Company Number: FR-ASTRAZENECA-2011SE18373

PATIENT
  Age: 93 Year
  Sex: Male

DRUGS (6)
  1. ATACAND [Suspect]
     Route: 048
     Dates: start: 20110124, end: 20110210
  2. SERESTA [Concomitant]
     Indication: PRURITUS
     Route: 048
     Dates: start: 20110114, end: 20110210
  3. GLUCOPHAGE [Concomitant]
     Indication: TYPE 2 DIABETES MELLITUS
     Route: 048
     Dates: end: 20110215
  4. COVERSYL [Concomitant]
  5. LASIX [Suspect]
     Route: 048
     Dates: start: 20101101
  6. KARDEGIC [Concomitant]
     Route: 048

REACTIONS (2)
  - ORTHOSTATIC HYPOTENSION [None]
  - FALL [None]
